FAERS Safety Report 20632596 (Version 1)
Quarter: 2022Q1

REPORT INFORMATION
  Report Type: Spontaneous
  Country: IE (occurrence: IE)
  Receive Date: 20220324
  Receipt Date: 20220324
  Transmission Date: 20220423
  Serious: Yes (Other)
  Sender: FDA-Public Use
  Company Number: IE-TEVA-2022-IE-2019246

PATIENT
  Age: 6 Month
  Sex: Male

DRUGS (2)
  1. PREGABALIN [Suspect]
     Active Substance: PREGABALIN
     Indication: Anxiety
     Dosage: 600MG PRESCRIBED AND 600MG ILLICIT
     Route: 064
  2. PREGABALIN [Suspect]
     Active Substance: PREGABALIN
     Dosage: 600MG PRESCRIBED AND 600MG ILLICIT
     Route: 063

REACTIONS (3)
  - Developmental delay [Recovering/Resolving]
  - Foetal exposure during pregnancy [Unknown]
  - Exposure via breast milk [Unknown]
